APPROVED DRUG PRODUCT: PALIPERIDONE
Active Ingredient: PALIPERIDONE
Strength: 1.5MG
Dosage Form/Route: TABLET, EXTENDED RELEASE;ORAL
Application: A204707 | Product #001 | TE Code: AB
Applicant: AMNEAL PHARMACEUTICALS OF NEW YORK LLC
Approved: Sep 23, 2019 | RLD: No | RS: No | Type: RX